FAERS Safety Report 9413137 (Version 1)
Quarter: 2013Q3

REPORT INFORMATION
  Report Type: Spontaneous
  Country: FR (occurrence: FR)
  Receive Date: 20130722
  Receipt Date: 20130722
  Transmission Date: 20140515
  Serious: Yes (Hospitalization)
  Sender: FDA-Public Use
  Company Number: FR-ABBOTT-13P-056-1110349-00

PATIENT
  Sex: Female
  Weight: 53 kg

DRUGS (3)
  1. HUMIRA [Suspect]
     Indication: RHEUMATOID ARTHRITIS
     Route: 058
  2. NICOPATCH [Suspect]
     Indication: EX-TOBACCO USER
     Route: 061
     Dates: start: 20130101, end: 20130630
  3. NICOPATCH [Suspect]

REACTIONS (3)
  - Erythema [Unknown]
  - Skin hyperpigmentation [Unknown]
  - Local swelling [Unknown]
